FAERS Safety Report 9197305 (Version 2)
Quarter: 2013Q2

REPORT INFORMATION
  Report Type: Spontaneous
  Country: PL (occurrence: PL)
  Receive Date: 20130328
  Receipt Date: 20130410
  Transmission Date: 20140414
  Serious: Yes (Other)
  Sender: FDA-Public Use
  Company Number: PL-JNJFOC-20130311767

PATIENT
  Age: 32 Year
  Sex: Female

DRUGS (12)
  1. CETIRIZINE HYDROCHLORIDE [Suspect]
     Indication: HERPES GESTATIONIS
     Route: 048
  2. CETIRIZINE HYDROCHLORIDE [Suspect]
     Indication: HERPES GESTATIONIS
     Route: 048
  3. DEXAMETHASONE [Suspect]
     Indication: HERPES GESTATIONIS
     Route: 042
  4. DEXAMETHASONE [Suspect]
     Indication: HERPES GESTATIONIS
     Route: 042
  5. STEROIDS NOS [Suspect]
     Indication: HERPES GESTATIONIS
     Route: 061
  6. CEFUROXIME [Concomitant]
     Indication: PROPHYLAXIS
  7. UNKNOWN MEDICATION [Concomitant]
     Indication: OEDEMA
  8. UNKNOWN MEDICATION [Concomitant]
     Indication: DYSPNOEA
  9. HEPARIN [Concomitant]
     Indication: DYSPNOEA
  10. HEPARIN [Concomitant]
     Indication: OEDEMA
  11. ACYCLOVIR [Concomitant]
     Indication: ORAL HERPES
     Route: 048
  12. CLEMASTINE [Concomitant]
     Indication: ORAL HERPES
     Route: 048

REACTIONS (11)
  - Chest pain [Unknown]
  - Skin lesion [Recovering/Resolving]
  - Blister [Recovering/Resolving]
  - Pruritus generalised [Recovering/Resolving]
  - Dyspnoea [Recovered/Resolved]
  - Local swelling [Recovered/Resolved]
  - Overdose [Unknown]
  - Off label use [Unknown]
  - Maternal exposure during pregnancy [None]
  - Amniorrhoea [None]
  - Maternal exposure during delivery [None]
